FAERS Safety Report 9279380 (Version 2)
Quarter: 2013Q2

REPORT INFORMATION
  Report Type: Spontaneous
  Country: US (occurrence: US)
  Receive Date: 20130508
  Receipt Date: 20130606
  Transmission Date: 20140414
  Serious: Yes (Other)
  Sender: FDA-Public Use
  Company Number: US-GILEAD-2013-0074711

PATIENT
  Sex: Female

DRUGS (3)
  1. LETAIRIS [Suspect]
     Indication: PRODUCT USED FOR UNKNOWN INDICATION
     Dosage: 10 MG, QD
     Dates: start: 20110912
  2. TYVASO [Concomitant]
  3. REVATIO [Concomitant]

REACTIONS (6)
  - Upper limb fracture [Unknown]
  - Upper limb fracture [Unknown]
  - Syncope [Unknown]
  - Hypotension [Unknown]
  - Dehydration [Unknown]
  - Oedema [Unknown]
